FAERS Safety Report 15449503 (Version 3)
Quarter: 2019Q1

REPORT INFORMATION
  Report Type: Report from Study
  Country: GB (occurrence: DE)
  Receive Date: 20181001
  Receipt Date: 20190222
  Transmission Date: 20190417
  Serious: Yes (Life-Threatening)
  Sender: FDA-Public Use
  Company Number: DE-TEVA-2018-DE-959475

PATIENT
  Age: 83 Year
  Sex: Female
  Weight: 71 kg

DRUGS (16)
  1. ASPIRIN 100 MG [Suspect]
     Active Substance: ASPIRIN
     Indication: THROMBOSIS PROPHYLAXIS
     Dosage: 100 MILLIGRAM DAILY;
     Route: 048
  2. CORVATON RETARD [Concomitant]
     Active Substance: MOLSIDOMINE
     Indication: CORONARY ARTERY DISEASE
     Dosage: 2 DOSAGE FORMS DAILY;
     Route: 048
  3. FAVISTAN [Suspect]
     Active Substance: METHIMAZOLE
     Indication: THYROID DISORDER
     Dates: start: 19950916, end: 19950917
  4. NITRO [Concomitant]
     Active Substance: NITROGLYCERIN
     Indication: ANGIOGRAM
     Dosage: 2 (DAILY DOSE), , RESPIRATORY
     Route: 055
     Dates: start: 19950907, end: 19950907
  5. ISOSORBIDE MONONITRATE. [Concomitant]
     Active Substance: ISOSORBIDE MONONITRATE
     Indication: CORONARY ARTERY DISEASE
     Dosage: 20 MILLIGRAM DAILY;
     Route: 048
     Dates: end: 19950923
  6. IRENAT [Suspect]
     Active Substance: SODIUM PERCHLORATE
     Indication: THYROID DISORDER
     Route: 048
     Dates: start: 19950907, end: 19950916
  7. OFLOXACIN. [Suspect]
     Active Substance: OFLOXACIN
     Indication: URINARY TRACT INFECTION
     Route: 048
     Dates: start: 19950917, end: 19950923
  8. METAMIZOLE [Suspect]
     Active Substance: METAMIZOLE
     Indication: PAIN
     Route: 048
     Dates: start: 19950908, end: 19950908
  9. PASPERTIN [METOCLOPRAMIDE HYDROCHLORIDE] [Suspect]
     Active Substance: METOCLOPRAMIDE HYDROCHLORIDE
     Indication: VOMITING
     Route: 048
     Dates: start: 19950909, end: 19950923
  10. HEPARIN [Suspect]
     Active Substance: HEPARIN SODIUM
     Indication: THROMBOSIS PROPHYLAXIS
     Route: 058
     Dates: start: 19950913, end: 19950922
  11. LEXOTANIL [Suspect]
     Active Substance: BROMAZEPAM
     Indication: SEDATION
     Route: 048
     Dates: start: 19950907, end: 19950912
  12. ADALAT T [Suspect]
     Active Substance: NIFEDIPINE
     Indication: CARDIAC FAILURE
     Route: 048
     Dates: start: 19950907, end: 19950914
  13. BAYMYCARD [Concomitant]
     Active Substance: NISOLDIPINE
     Indication: CARDIAC FAILURE
     Route: 065
  14. BACTRIM-FORTE [Suspect]
     Active Substance: SULFAMETHOXAZOLE\TRIMETHOPRIM
     Indication: URINARY TRACT INFECTION
     Route: 048
     Dates: start: 19950913, end: 19950915
  15. DIPIDOLOR [Suspect]
     Active Substance: PIRITRAMIDE
     Indication: PAIN
     Route: 065
     Dates: start: 19950908, end: 19950909
  16. PEPDUL [Concomitant]
     Active Substance: FAMOTIDINE
     Indication: PROPHYLAXIS
     Dosage: 1 DOSAGE FORMS DAILY;
     Route: 048

REACTIONS (6)
  - Pain [Unknown]
  - Rash [Recovering/Resolving]
  - Stevens-Johnson syndrome [Recovering/Resolving]
  - Mucosal erosion [Recovering/Resolving]
  - Toxic epidermal necrolysis [Recovering/Resolving]
  - Conjunctivitis [Recovering/Resolving]

NARRATIVE: CASE EVENT DATE: 19950922
